FAERS Safety Report 13736308 (Version 1)
Quarter: 2017Q3

REPORT INFORMATION
  Report Type: Spontaneous
  Country: US (occurrence: US)
  Receive Date: 20170710
  Receipt Date: 20170710
  Transmission Date: 20171127
  Serious: Yes (Other)
  Sender: FDA-Public Use
  Company Number: None

PATIENT
  Age: 60 Year
  Sex: Male
  Weight: 74.84 kg

DRUGS (6)
  1. INSULIN [Concomitant]
     Active Substance: INSULIN NOS
  2. OFLOXACIN OTIC [Suspect]
     Active Substance: OFLOXACIN
     Indication: EAR INFECTION
     Dosage: DOSE - ROUTE - FREQUENCY?3 DROPS IN INFECTED EAR 3X
     Dates: start: 20170413, end: 20170415
  3. MESTION [Concomitant]
  4. LEVEMIR [Concomitant]
     Active Substance: INSULIN DETEMIR
  5. APIDRA [Concomitant]
     Active Substance: INSULIN GLULISINE
  6. HYDROCODONE-ACETAMINOPHEN [Concomitant]
     Active Substance: ACETAMINOPHEN\HYDROCODONE

REACTIONS (5)
  - Somnolence [None]
  - Asthenia [None]
  - Speech disorder [None]
  - Lung disorder [None]
  - Weight decreased [None]

NARRATIVE: CASE EVENT DATE: 20170413
